FAERS Safety Report 5591980-X (Version None)
Quarter: 2008Q1

REPORT INFORMATION
  Report Type: 
  Country: None (occurrence: None)
  Receive Date: 20080115
  Receipt Date: 20080109
  Transmission Date: 20080703
  Serious: Yes (Death)
  Sender: FDA-Public Use
  Company Number: GB-BRACCO-000001

PATIENT

DRUGS (4)
  1. NIOPAM [Suspect]
     Indication: COMPUTERISED TOMOGRAM ABDOMEN
     Route: 065
     Dates: start: 20071119, end: 20071119
  2. SOLUZIONE [Concomitant]
     Route: 042
  3. HYDROCORTISON                      /00028601/ [Concomitant]
     Route: 065
  4. PIRITON [Concomitant]
     Route: 065

REACTIONS (1)
  - SKIN REACTION [None]
